FAERS Safety Report 4975499-2 (Version None)
Quarter: 2006Q2

REPORT INFORMATION
  Report Type: 
  Country: None (occurrence: None)
  Receive Date: 20060410
  Receipt Date: 20060324
  Transmission Date: 20061013
  Serious: Yes (Hospitalization)
  Sender: FDA-Public Use
  Company Number: 430003E06ITA

PATIENT
  Age: 35 Year
  Sex: Female

DRUGS (6)
  1. METHOTREXATE [Suspect]
     Indication: ACUTE PROMYELOCYTIC LEUKAEMIA
     Dosage: 22.5 MG, 1 IN 1 DAYS,
     Dates: start: 20041027, end: 20041123
  2. METHOTREXATE [Suspect]
     Indication: ACUTE PROMYELOCYTIC LEUKAEMIA
     Dosage: 22.5 MG, 1 IN 1 DAYS,
     Dates: start: 20041130, end: 20050107
  3. ATRACURIUM BESYLATE [Suspect]
     Indication: ACUTE PROMYELOCYTIC LEUKAEMIA
  4. CHEMOTHERAPEUTIC AGENTS (OTHER CHEMOTHERAPEUTICS) [Suspect]
     Indication: ACUTE PROMYELOCYTIC LEUKAEMIA
  5. MERCAPTOPURINE [Suspect]
     Indication: ACUTE PROMYELOCYTIC LEUKAEMIA
     Dosage: 75 MG, 1 IN 1 DAYS,
     Dates: start: 20041027, end: 20041128
  6. MERCAPTOPURINE [Suspect]
     Indication: ACUTE PROMYELOCYTIC LEUKAEMIA
     Dosage: 75 MG, 1 IN 1 DAYS,
     Dates: start: 20041029, end: 20050111

REACTIONS (4)
  - CHLOROMA [None]
  - DISEASE PROGRESSION [None]
  - LEUKAEMIA RECURRENT [None]
  - MASTOIDITIS [None]
